FAERS Safety Report 21027918 (Version 1)
Quarter: 2022Q2

REPORT INFORMATION
  Report Type: Spontaneous
  Country: AT (occurrence: AT)
  Receive Date: 20220630
  Receipt Date: 20220630
  Transmission Date: 20220721
  Serious: Yes (Other)
  Sender: FDA-Public Use
  Company Number: AT-ABBVIE-22K-009-4397473-00

PATIENT
  Age: 43 Year
  Sex: Female

DRUGS (1)
  1. ADALIMUMAB [Suspect]
     Active Substance: ADALIMUMAB
     Indication: Crohn^s disease
     Dosage: 40 MG, BIW
     Route: 058
     Dates: start: 20220121

REACTIONS (7)
  - Goitre [Unknown]
  - Spinal pain [Unknown]
  - Papillary thyroid cancer [Unknown]
  - Pain in extremity [Unknown]
  - Arthralgia [Unknown]
  - Infected cyst [Unknown]
  - Metastasis [Unknown]

NARRATIVE: CASE EVENT DATE: 20220101
